FAERS Safety Report 11980728 (Version 3)
Quarter: 2016Q2

REPORT INFORMATION
  Report Type: Report from Study
  Country: US (occurrence: US)
  Receive Date: 20160129
  Receipt Date: 20160408
  Transmission Date: 20160815
  Serious: Yes (Hospitalization, Other)
  Sender: FDA-Public Use
  Company Number: US-ABBVIE-15K-163-1446495-00

PATIENT
  Sex: Male
  Weight: 98.06 kg

DRUGS (7)
  1. METHOTREXATE [Concomitant]
     Active Substance: METHOTREXATE
     Indication: POLYCHONDRITIS
  2. SUPREP BOWEL PREP [Concomitant]
     Active Substance: MAGNESIUM SULFATE\POTASSIUM SULFATE\SODIUM SULFATE
     Indication: PRODUCT USED FOR UNKNOWN INDICATION
     Dosage: 17.5 GRAM-3.13 GRAM-1.6 GRAM ORAL SOLUTION
     Route: 048
  3. HUMIRA [Suspect]
     Active Substance: ADALIMUMAB
     Indication: COLITIS ULCERATIVE
     Route: 058
     Dates: start: 201401, end: 201401
  4. AZULFIDINE [Concomitant]
     Active Substance: SULFASALAZINE
     Indication: PRODUCT USED FOR UNKNOWN INDICATION
  5. HUMIRA [Suspect]
     Active Substance: ADALIMUMAB
     Dosage: FOUR WEEKS AFTER 160 MG DOSE
     Route: 058
     Dates: start: 2014, end: 201511
  6. PREDNISONE. [Concomitant]
     Active Substance: PREDNISONE
     Indication: POLYCHONDRITIS
     Route: 048
  7. HUMIRA [Suspect]
     Active Substance: ADALIMUMAB
     Indication: POLYCHONDRITIS
     Dosage: TWO WEEKS AFTER 160 MG DOSE
     Route: 058
     Dates: start: 2014, end: 2014

REACTIONS (24)
  - Mobility decreased [Unknown]
  - Gastrointestinal dysplasia [Not Recovered/Not Resolved]
  - Pulmonary oedema [Recovered/Resolved]
  - Intestinal adenocarcinoma [Unknown]
  - Back disorder [Unknown]
  - Colon adenoma [Unknown]
  - Weight decreased [Not Recovered/Not Resolved]
  - Injection site reaction [Unknown]
  - Tremor [Unknown]
  - Parkinson^s disease [Not Recovered/Not Resolved]
  - Colon cancer [Recovered/Resolved]
  - Muscular weakness [Recovering/Resolving]
  - Polychondritis [Recovered/Resolved]
  - Resting tremor [Not Recovered/Not Resolved]
  - Injection site rash [Unknown]
  - Pyrexia [Unknown]
  - Arthralgia [Unknown]
  - Leukopenia [Unknown]
  - Feeling hot [Unknown]
  - Arthritis [Unknown]
  - Painful respiration [Recovered/Resolved]
  - Myopathy toxic [Recovering/Resolving]
  - Haemorrhoids [Unknown]
  - Rectal cancer [Recovering/Resolving]

NARRATIVE: CASE EVENT DATE: 2014
